FAERS Safety Report 9735989 (Version 1)
Quarter: 2013Q4

REPORT INFORMATION
  Report Type: Spontaneous
  Country: US (occurrence: US)
  Receive Date: 20131206
  Receipt Date: 20131206
  Transmission Date: 20140711
  Serious: Yes (Other)
  Sender: FDA-Public Use
  Company Number: US-ABBVIE-13P-163-1173709-00

PATIENT
  Sex: Female

DRUGS (2)
  1. SYNTHROID [Suspect]
     Indication: HYPOTHYROIDISM
  2. VITAMINS NOS [Concomitant]
     Indication: PRODUCT USED FOR UNKNOWN INDICATION

REACTIONS (16)
  - Thyroid function test abnormal [Recovered/Resolved]
  - Erythema of eyelid [Recovered/Resolved]
  - Drug intolerance [Unknown]
  - Feeling abnormal [Unknown]
  - Drug eruption [Unknown]
  - Drug ineffective [Unknown]
  - Muscle spasms [Recovered/Resolved]
  - Adverse reaction [Recovered/Resolved]
  - Eye swelling [Recovered/Resolved]
  - Rash [Recovered/Resolved]
  - Unevaluable event [Recovered/Resolved]
  - Erythema [Recovered/Resolved]
  - Eyelid oedema [Recovered/Resolved]
  - Eyelid skin dryness [Recovered/Resolved]
  - Adverse drug reaction [Recovered/Resolved]
  - Ocular hyperaemia [Recovered/Resolved]
